FAERS Safety Report 5424503-6 (Version None)
Quarter: 2007Q3

REPORT INFORMATION
  Report Type: 
  Country: None (occurrence: None)
  Receive Date: 20070822
  Receipt Date: 20070807
  Transmission Date: 20080115
  Serious: Yes (Hospitalization, Other)
  Sender: FDA-Public Use
  Company Number: ENTC2007-0211

PATIENT

DRUGS (6)
  1. STALEVO 100 [Suspect]
     Indication: PARKINSON'S DISEASE
     Dosage: 450 MG (150 MG, 3 IN 1 D) ORAL
     Route: 048
  2. SIFROL [Concomitant]
  3. PK-MERZ [Concomitant]
  4. TRITACE [Concomitant]
  5. NOVALGIN [Concomitant]
  6. ACIMETHIN [Concomitant]

REACTIONS (2)
  - GAMMA-GLUTAMYLTRANSFERASE INCREASED [None]
  - MULTIPLE INJURIES [None]
